FAERS Safety Report 13827756 (Version 2)
Quarter: 2017Q3

REPORT INFORMATION
  Report Type: Spontaneous
  Country: SE (occurrence: SE)
  Receive Date: 20170803
  Receipt Date: 20170817
  Transmission Date: 20171127
  Serious: Yes (Life-Threatening, Hospitalization, Other)
  Sender: FDA-Public Use
  Company Number: SE-CONCORDIA PHARMACEUTICALS INC.-GSH201708-004474

PATIENT
  Age: 43 Year
  Sex: Female

DRUGS (1)
  1. PARNATE [Suspect]
     Active Substance: TRANYLCYPROMINE SULFATE
     Indication: OBSESSIVE-COMPULSIVE DISORDER
     Route: 065
     Dates: start: 20170603, end: 20170619

REACTIONS (4)
  - Paraesthesia [Recovered/Resolved]
  - Fatigue [Recovered/Resolved]
  - Discomfort [Recovered/Resolved]
  - Hypertensive crisis [Recovered/Resolved]

NARRATIVE: CASE EVENT DATE: 20170610
